FAERS Safety Report 9713330 (Version 2)
Quarter: 2013Q4

REPORT INFORMATION
  Report Type: Spontaneous
  Country: IT (occurrence: IT)
  Receive Date: 20131126
  Receipt Date: 20131126
  Transmission Date: 20140711
  Serious: Yes (Other)
  Sender: FDA-Public Use
  Company Number: IT-BANPHARM-20131893

PATIENT
  Age: 11 Month
  Sex: Male

DRUGS (1)
  1. VALPROIC ACID UNKNOWN PRODUCT [Suspect]
     Indication: PETIT MAL EPILEPSY
     Route: 048

REACTIONS (1)
  - Petit mal epilepsy [Recovered/Resolved]
